FAERS Safety Report 17026525 (Version 1)
Quarter: 2019Q4

REPORT INFORMATION
  Report Type: Spontaneous
  Country: GB (occurrence: GB)
  Receive Date: 20191113
  Receipt Date: 20191113
  Transmission Date: 20200122
  Serious: Yes (Other)
  Sender: FDA-Public Use
  Company Number: GB-PFIZER INC-2019486115

PATIENT
  Age: 66 Year
  Sex: Male

DRUGS (1)
  1. AZITHROMYCIN ANHYDROUS. [Suspect]
     Active Substance: AZITHROMYCIN ANHYDROUS
     Dosage: 2250 MG, WEEKLY (3 OF 250 MG ON MONDAY/WEDNESDAY/FRIDAY)
     Route: 048
     Dates: start: 20180115, end: 20180122

REACTIONS (4)
  - Off label use [Unknown]
  - Visual impairment [Unknown]
  - Product use issue [Unknown]
  - Myalgia [Unknown]

NARRATIVE: CASE EVENT DATE: 20180115
